FAERS Safety Report 4335466-9 (Version None)
Quarter: 2004Q1

REPORT INFORMATION
  Report Type: 
  Country: None (occurrence: None)
  Receive Date: 20040330
  Receipt Date: 20031222
  Transmission Date: 20041129
  Serious: No
  Sender: FDA-Public Use
  Company Number: 27416

PATIENT
  Sex: Male

DRUGS (1)
  1. TRAVATAN [Suspect]

REACTIONS (2)
  - ABNORMAL SENSATION IN EYE [None]
  - GROWTH OF EYELASHES [None]
